FAERS Safety Report 6862984-1 (Version None)
Quarter: 2010Q2

REPORT INFORMATION
  Report Type: 
  Country: None (occurrence: None)
  Receive Date: 20100528
  Receipt Date: 20100326
  Transmission Date: 20101027
  Serious: No
  Sender: FDA-Public Use
  Company Number: 009455

PATIENT
  Sex: Female
  Weight: 111.1 kg

DRUGS (2)
  1. LACOSAMIDE [Suspect]
     Indication: CONVULSION
     Dosage: 200 MG BID ORAL
     Route: 048
     Dates: start: 20091201
  2. FELBATOL [Concomitant]

REACTIONS (6)
  - ABNORMAL DREAMS [None]
  - AGGRESSION [None]
  - FOOD CRAVING [None]
  - MOANING [None]
  - NIGHT SWEATS [None]
  - WEIGHT INCREASED [None]
